FAERS Safety Report 10379825 (Version 1)
Quarter: 2014Q1

REPORT INFORMATION
  Report Type: Spontaneous
  Country: US (occurrence: None)
  Receive Date: 20140306
  Receipt Date: 20140306
  Transmission Date: 20141002
  Serious: Yes (Hospitalization)
  Sender: FDA-Public Use
  Company Number: 163-21880-13033561

PATIENT
  Age: 73 Year
  Sex: Male

DRUGS (12)
  1. REVLIMID (LENALIDOMIDE) (25 MILLIGRAM, CAPSULES) [Suspect]
     Indication: PLASMA CELL MYELOMA
     Dosage: 25 MG, 21 IN 21 D, PO
     Route: 048
     Dates: start: 20130226, end: 20130318
  2. ASA (ACETYLSALICYLIC ACID) [Concomitant]
  3. DOCUSATE (DOCUSATE) [Concomitant]
  4. LASIX (FUROSEMIDE) [Concomitant]
  5. TOPROL XL (METOPROLOL SUCCINATE) (100 MILLIGRAM) (METOPROLOL SUCCINATE) [Concomitant]
  6. MULTIVITAMINS (MULTIVITAMINS) [Concomitant]
  7. OXYCODONE (OXYCODONE) [Concomitant]
  8. SENNA S (COLOXYL WITH SENNA) [Concomitant]
  9. SPIRONOLACTONE (SPIRONOLACTONE) [Concomitant]
  10. ZOMETA (ZOLEDRONIC ACID) [Concomitant]
  11. DEXAMETHASONE (DEXAMETHASONE) [Concomitant]
  12. LISINOPRIL (LISINOPRIL) [Concomitant]

REACTIONS (1)
  - Cardiac failure congestive [None]
